FAERS Safety Report 8960211 (Version 1)
Quarter: 2012Q4

REPORT INFORMATION
  Report Type: Report from Study
  Country: PH (occurrence: PH)
  Receive Date: 20121211
  Receipt Date: 20121211
  Transmission Date: 20130627
  Serious: Yes (Hospitalization)
  Sender: FDA-Public Use
  Company Number: PH-PFIZER INC-2012309873

PATIENT
  Age: 26 Year
  Sex: Female
  Weight: 69 kg

DRUGS (16)
  1. DILANTIN [Suspect]
     Indication: DRUG USE FOR UNKNOWN INDICATION
     Dosage: UNK
  2. DILANTIN [Suspect]
     Dosage: 300 mg, daily
     Dates: start: 20091006
  3. PLACEBO [Suspect]
     Indication: LUPUS NEPHRITIS
     Dosage: DAY1 AND DAY 15, AT WEEK 16, EVERY 16 WEEK.DATE LAST DOSE PRIOR TO SAE: 01OCT09. FORM: INFUSION SOL
     Route: 042
     Dates: start: 20090914
  4. MYCOPHENOLATE MOFETIL [Suspect]
     Indication: LUPUS NEPHRITIS
     Dosage: 1000 mg, 2x/day
     Route: 048
     Dates: start: 20091002, end: 20091005
  5. MYCOPHENOLATE MOFETIL [Suspect]
     Dosage: 1000 mg, 2x/day
     Route: 048
     Dates: start: 20071007, end: 20091103
  6. PREDNISONE [Suspect]
     Indication: LUPUS NEPHRITIS
     Dosage: 50 mg, daily
     Route: 048
     Dates: start: 20090929, end: 20091006
  7. PREDNISONE [Suspect]
     Dosage: 40 mg, daily
     Route: 048
     Dates: start: 20091007, end: 20091103
  8. HYDROCORTISONE [Concomitant]
     Dosage: 400 mg, UNK
     Route: 042
     Dates: start: 20091006, end: 20091007
  9. NIFEDIPINE [Concomitant]
     Dosage: 40 mg, UNK
     Dates: start: 20091005, end: 20091006
  10. LOSARTAN [Concomitant]
     Dosage: 100 mg, UNK
     Dates: start: 20091001, end: 20091005
  11. LEVOFLOXACIN [Concomitant]
     Dosage: 500 mg, UNK
     Route: 042
     Dates: start: 20091011, end: 20091017
  12. SALBUTAMOL [Concomitant]
     Dosage: NUCLEAR FACTOR-B (NFB)
     Dates: start: 20091011, end: 20091013
  13. CEFUROXIME [Concomitant]
     Dosage: 1 g, UNK
     Route: 048
     Dates: start: 20091006, end: 20091010
  14. FERROUS SULFATE [Concomitant]
     Dosage: UNK
     Dates: start: 20091013
  15. METOPROLOL [Concomitant]
     Dosage: UNK
     Dates: start: 20091006, end: 20091013
  16. OMEPRAZOLE [Concomitant]
     Dosage: UNK
     Dates: start: 20091006, end: 20091013

REACTIONS (2)
  - Pyrexia [Recovered/Resolved]
  - Cerebral infarction [Recovered/Resolved]
